FAERS Safety Report 9200037 (Version 1)
Quarter: 2013Q1

REPORT INFORMATION
  Report Type: Spontaneous
  Country: BR (occurrence: BR)
  Receive Date: 20130329
  Receipt Date: 20130329
  Transmission Date: 20140127
  Serious: Yes (Other)
  Sender: FDA-Public Use
  Company Number: BR-SANOFI-AVENTIS-2013SA030446

PATIENT
  Sex: Female
  Weight: 1.3 kg

DRUGS (1)
  1. CLEXANE [Suspect]
     Indication: THROMBOSIS
     Route: 064
     Dates: start: 201206

REACTIONS (1)
  - Foetal growth restriction [Unknown]
